FAERS Safety Report 9494136 (Version 2)
Quarter: 2014Q1

REPORT INFORMATION
  Report Type: Report from Study
  Country: US (occurrence: US)
  Receive Date: 20130903
  Receipt Date: 20140305
  Transmission Date: 20141002
  Serious: Yes (Hospitalization, Other)
  Sender: FDA-Public Use
  Company Number: PHEH2013US018456

PATIENT
  Age: 40 Year
  Sex: Male

DRUGS (2)
  1. TOBI [Suspect]
     Indication: SPINA BIFIDA
     Dosage: 300 MG, BID
  2. TOBI [Suspect]
     Indication: OFF LABEL USE

REACTIONS (1)
  - Spina bifida [Unknown]
